FAERS Safety Report 8997486 (Version 1)
Quarter: 2013Q1

REPORT INFORMATION
  Report Type: Spontaneous
  Country: US (occurrence: US)
  Receive Date: 20130104
  Receipt Date: 20130104
  Transmission Date: 20140127
  Serious: No
  Sender: FDA-Public Use
  Company Number: US-ASTRAZENECA-2012SE94927

PATIENT
  Age: 61 Year
  Sex: Female

DRUGS (8)
  1. CRESTOR [Suspect]
     Indication: BLOOD CHOLESTEROL INCREASED
     Route: 048
     Dates: start: 20121211, end: 20121213
  2. CRESTOR [Suspect]
     Indication: BLOOD CHOLESTEROL INCREASED
     Route: 048
  3. OMEPRAZOLE [Suspect]
     Indication: GASTROOESOPHAGEAL REFLUX DISEASE
     Route: 048
  4. SIMBALTA [Concomitant]
  5. TRAZADONE [Concomitant]
  6. DICLOFENAC [Concomitant]
     Indication: ARTHRITIS
  7. GABAPENTIN [Concomitant]
  8. HYDROXYCHLOROQUINE [Concomitant]
     Indication: ARTHRALGIA

REACTIONS (2)
  - Tremor [Unknown]
  - Dizziness [Recovered/Resolved]
